FAERS Safety Report 7411464-3 (Version None)
Quarter: 2011Q2

REPORT INFORMATION
  Report Type: 
  Country: None (occurrence: None)
  Receive Date: 20110413
  Receipt Date: 20110401
  Transmission Date: 20111010
  Serious: Yes (Hospitalization, Other)
  Sender: FDA-Public Use
  Company Number: PHHY2011US18619

PATIENT
  Sex: Male

DRUGS (3)
  1. EXJADE [Suspect]
     Indication: CHRONIC LYMPHOCYTIC LEUKAEMIA
     Dosage: 1250 MG, DAILY
     Route: 048
  2. EXJADE [Suspect]
     Indication: HYPOGAMMAGLOBULINAEMIA
  3. STEROIDS NOS [Concomitant]

REACTIONS (5)
  - TINNITUS [None]
  - NEUROPATHY PERIPHERAL [None]
  - HYPOAESTHESIA [None]
  - LUNG INFECTION [None]
  - LIVER FUNCTION TEST ABNORMAL [None]
